FAERS Safety Report 7759897-X (Version None)
Quarter: 2011Q3

REPORT INFORMATION
  Report Type: 
  Country: None (occurrence: None)
  Receive Date: 20110919
  Receipt Date: 20110907
  Transmission Date: 20111222
  Serious: Yes (Hospitalization, Disabling)
  Sender: FDA-Public Use
  Company Number: JP-MERCK-0809USA04504

PATIENT
  Age: 75 Year
  Sex: Female

DRUGS (2)
  1. FOSAMAX [Suspect]
     Indication: OSTEOPOROSIS
     Route: 048
     Dates: start: 20040501, end: 20070901
  2. FOSAMAX [Suspect]
     Route: 048
     Dates: start: 20071001, end: 20080401

REACTIONS (11)
  - ABSCESS JAW [None]
  - BACTERAEMIA [None]
  - PLEURAL EFFUSION [None]
  - STREPTOCOCCUS TEST POSITIVE [None]
  - ESCHERICHIA TEST POSITIVE [None]
  - WEIGHT DECREASED [None]
  - OSTEONECROSIS OF JAW [None]
  - LIVER ABSCESS [None]
  - DECREASED APPETITE [None]
  - ANAEMIA [None]
  - MALNUTRITION [None]
